FAERS Safety Report 6496645-8 (Version None)
Quarter: 2009Q4

REPORT INFORMATION
  Report Type: 
  Country: None (occurrence: None)
  Receive Date: 20091210
  Receipt Date: 20091119
  Transmission Date: 20100525
  Serious: Yes (Hospitalization)
  Sender: FDA-Public Use
  Company Number: 8053789

PATIENT
  Age: 46 Year
  Sex: Female
  Weight: 46.3 kg

DRUGS (4)
  1. PREDNISOLONE [Suspect]
     Indication: AUTOIMMUNE HEPATITIS
     Dosage: SEE IMAGE
     Route: 048
     Dates: start: 20071001, end: 20071001
  2. PREDNISOLONE [Suspect]
     Indication: AUTOIMMUNE HEPATITIS
     Dosage: SEE IMAGE
     Route: 048
     Dates: start: 20071001, end: 20071001
  3. PREDNISOLONE [Suspect]
     Indication: AUTOIMMUNE HEPATITIS
     Dosage: SEE IMAGE
     Route: 048
     Dates: start: 20071001
  4. PREDNISOLONE [Suspect]
     Indication: AUTOIMMUNE HEPATITIS
     Dosage: SEE IMAGE
     Route: 048
     Dates: start: 20071001

REACTIONS (4)
  - AUTOIMMUNE HEPATITIS [None]
  - FATIGUE [None]
  - PRODUCT SUBSTITUTION ISSUE [None]
  - SPLENOMEGALY [None]
